FAERS Safety Report 5065431-8 (Version None)
Quarter: 2006Q3

REPORT INFORMATION
  Report Type: 
  Country: None (occurrence: None)
  Receive Date: 20060731
  Receipt Date: 20060727
  Transmission Date: 20061208
  Serious: Yes (Death, Hospitalization)
  Sender: FDA-Public Use
  Company Number: PHFR2006GB02349

PATIENT
  Age: 91 Year
  Sex: Female

DRUGS (5)
  1. BUMETANIDE [Suspect]
     Indication: HYPERTENSION
     Route: 065
  2. IBUPROFEN [Suspect]
     Indication: OSTEOARTHRITIS
     Route: 065
  3. SPIRONOLACTONE [Suspect]
     Indication: HYPERTENSION
     Route: 065
  4. DIGOXIN [Suspect]
     Route: 065
  5. DICLOFENAC [Suspect]
     Indication: OSTEOARTHRITIS
     Route: 065

REACTIONS (6)
  - BLOOD CREATINE INCREASED [None]
  - BLOOD POTASSIUM INCREASED [None]
  - BLOOD UREA INCREASED [None]
  - FALL [None]
  - RENAL FAILURE [None]
  - THERAPEUTIC AGENT TOXICITY [None]
